FAERS Safety Report 20321180 (Version 1)
Quarter: 2022Q1

REPORT INFORMATION
  Report Type: Spontaneous
  Country: US (occurrence: US)
  Receive Date: 20220111
  Receipt Date: 20220111
  Transmission Date: 20220423
  Serious: Yes (Death, Hospitalization)
  Sender: FDA-Public Use
  Company Number: US-BAYER-2022A001874

PATIENT
  Age: 55 Year
  Sex: Female

DRUGS (6)
  1. ASPIRIN [Suspect]
     Active Substance: ASPIRIN
     Route: 048
  2. SOTALOL [Suspect]
     Active Substance: SOTALOL
  3. GLIPIZIDE [Suspect]
     Active Substance: GLIPIZIDE
  4. DILTIAZEM [Suspect]
     Active Substance: DILTIAZEM
  5. CLOPIDOGREL [Suspect]
     Active Substance: CLOPIDOGREL BISULFATE
  6. ANASTROZOLE [Suspect]
     Active Substance: ANASTROZOLE

REACTIONS (2)
  - Completed suicide [Fatal]
  - Toxicity to various agents [Fatal]
